FAERS Safety Report 5170445-3 (Version None)
Quarter: 2006Q4

REPORT INFORMATION
  Report Type: 
  Country: None (occurrence: None)
  Receive Date: 20061212
  Receipt Date: 20061206
  Transmission Date: 20070319
  Serious: Yes (Hospitalization)
  Sender: FDA-Public Use
  Company Number: FR-ROXANE LABORATORIES, INC-2006-BP-14155RO

PATIENT
  Age: 3 Year
  Sex: Female

DRUGS (1)
  1. METHADONE HCL [Suspect]
     Indication: ACCIDENTAL EXPOSURE
     Dosage: ACCIDENTAL INGESTION
     Route: 048

REACTIONS (23)
  - ACCIDENTAL EXPOSURE [None]
  - ACUTE MYOCARDIAL INFARCTION [None]
  - ACUTE PULMONARY OEDEMA [None]
  - ASPIRATION BRONCHIAL [None]
  - BRADYPNOEA [None]
  - BRAIN OEDEMA [None]
  - CARDIOGENIC SHOCK [None]
  - DIABETIC HYPEROSMOLAR COMA [None]
  - DYSKINESIA [None]
  - HEPATIC FAILURE [None]
  - HEPATOMEGALY [None]
  - HYDROCEPHALUS [None]
  - HYPERGLYCAEMIA [None]
  - HYPOXIA [None]
  - LOSS OF CONSCIOUSNESS [None]
  - MULTI-ORGAN DISORDER [None]
  - NEUROLOGICAL SYMPTOM [None]
  - PNEUMONIA [None]
  - PNEUMONIA ASPIRATION [None]
  - SHOCK [None]
  - SNORING [None]
  - VENOUS PRESSURE JUGULAR DECREASED [None]
  - VENTRICULAR DYSFUNCTION [None]
